FAERS Safety Report 5269464-8 (Version None)
Quarter: 2007Q1

REPORT INFORMATION
  Report Type: 
  Country: None (occurrence: None)
  Receive Date: 20070314
  Receipt Date: 20070305
  Transmission Date: 20070707
  Serious: Yes (Life-Threatening)
  Sender: FDA-Public Use
  Company Number: 2007-155117-NL

PATIENT
  Age: 14 Day
  Sex: Male

DRUGS (4)
  1. VECURONIUM BROMIDE [Suspect]
     Indication: INTUBATION
  2. FLUCLOXACILLIN [Concomitant]
  3. RANITIDINE [Concomitant]
  4. HYOSCINE HBR HYT [Concomitant]

REACTIONS (2)
  - NEONATAL DISORDER [None]
  - PARALYSIS [None]
